FAERS Safety Report 19906031 (Version 1)
Quarter: 2021Q3

REPORT INFORMATION
  Report Type: Spontaneous
  Country: DE (occurrence: DE)
  Receive Date: 20210930
  Receipt Date: 20210930
  Transmission Date: 20211014
  Serious: Yes (Hospitalization)
  Sender: FDA-Public Use
  Company Number: DE-MYLANLABS-2021M1066508

PATIENT
  Age: 79 Year
  Sex: Male

DRUGS (15)
  1. RAMIPRIL. [Concomitant]
     Active Substance: RAMIPRIL
     Dosage: 5 MILLIGRAM, QD (5 MG, 1?0?0?0, TABLETTEN)
     Route: 048
  2. FENTANYL. [Concomitant]
     Active Substance: FENTANYL
     Dosage: 25 MG, ALLE 3TAGE WECHSEL, PFLASTER TRANSDERMAL
     Route: 062
  3. CLOTRIMAZOLE. [Concomitant]
     Active Substance: CLOTRIMAZOLE
     Dosage: BEI BEDARF, SALBE
     Route: 003
  4. AMLODIPIN                          /00972401/ [Concomitant]
     Active Substance: AMLODIPINE BESYLATE
     Dosage: 5 MG, 0.5?0?0.5?0, TABLETTEN
     Route: 048
  5. ACETYLSALICYLIC ACID [Suspect]
     Active Substance: ASPIRIN
     Indication: PRODUCT USED FOR UNKNOWN INDICATION
     Dosage: 100 MILLIGRAM, QD (100 MG, 0?0?1?0, TABLETTEN)
     Route: 048
  6. TORASEMID [Concomitant]
     Active Substance: TORSEMIDE
     Dosage: 10 MG, 1?0?0?0, TABLETTEN
     Route: 048
  7. METOPROLOL. [Concomitant]
     Active Substance: METOPROLOL
     Dosage: 47.5 MILLIGRAM, BID (47.5 MG, 1?0?1?0, TABLETTEN)
     Route: 048
  8. NATRIUMPICOSULFAT [Concomitant]
     Active Substance: SODIUM PICOSULFATE
     Dosage: 3 GTT DROPS (3 GTT, BEI BEDARF, TROPFEN)
     Route: 048
  9. SITAGLIPTIN [Concomitant]
     Active Substance: SITAGLIPTIN
     Dosage: 25 MILLIGRAM, QD (25 MG, 1?0?0?0, TABLETTEN)
     Route: 048
  10. FUSIDIC ACID [Concomitant]
     Active Substance: FUSIDIC ACID
     Dosage: 20 MG/G, BEI BEDARF, SALBE
     Route: 003
  11. INSULIN HUMAN W/ISOPHANE INSULIN [Concomitant]
     Active Substance: INSULIN HUMAN
     Dosage: 100 IE/ML, 28?0?20?0, INJEKTIONS?/INFUSIONSL?SUNG
     Route: 058
  12. CLOPIDOGREL [Suspect]
     Active Substance: CLOPIDOGREL BISULFATE
     Indication: PRODUCT USED FOR UNKNOWN INDICATION
     Dosage: 75 MILLIGRAM, QD (75 MG, 1?0?0?0, TABLETTEN)
     Route: 048
  13. SERTRALINE [Suspect]
     Active Substance: SERTRALINE HYDROCHLORIDE
     Indication: PRODUCT USED FOR UNKNOWN INDICATION
     Dosage: 50 MG, 1?0?0?0, TABLETTEN
     Route: 048
  14. ATORVASTATIN [Concomitant]
     Active Substance: ATORVASTATIN
     Dosage: 20 MILLIGRAM (20 MG, 0?0?0?4, TABLETTEN)
     Route: 048
  15. MACROGOL + ELECTROLYTES SANDOZ [Concomitant]
     Dosage: 1?0?0?0, PULVER
     Route: 048

REACTIONS (2)
  - Haematochezia [Recovering/Resolving]
  - Circumstance or information capable of leading to medication error [Unknown]

NARRATIVE: CASE EVENT DATE: 20210315
